FAERS Safety Report 25785787 (Version 4)
Quarter: 2025Q4

REPORT INFORMATION
  Report Type: Spontaneous
  Country: JP (occurrence: JP)
  Receive Date: 20250910
  Receipt Date: 20251212
  Transmission Date: 20260117
  Serious: Yes (Hospitalization)
  Sender: AMGEN
  Company Number: JP-AMGEN-JPNSP2025176720

PATIENT
  Age: 85 Year
  Sex: Female

DRUGS (4)
  1. EVENITY [Suspect]
     Active Substance: ROMOSOZUMAB-AQQG
     Indication: Osteoporosis
     Dosage: 210 MILLIGRAM, QMO
     Route: 058
     Dates: start: 20220817, end: 20221116
  2. EVENITY [Suspect]
     Active Substance: ROMOSOZUMAB-AQQG
     Indication: Compression fracture
  3. PREGABALIN [Concomitant]
     Active Substance: PREGABALIN
     Indication: Analgesic therapy
     Dosage: 50 MILLIGRAM, BID
     Dates: start: 20220817, end: 20221116
  4. ELDECALCITOL [Concomitant]
     Active Substance: ELDECALCITOL
     Indication: Osteoporosis
     Dosage: 0.75 MICROGRAM, QD
     Route: 048
     Dates: start: 20220817, end: 20221116

REACTIONS (3)
  - Femoral neck fracture [Not Recovered/Not Resolved]
  - Fall [Recovered/Resolved]
  - Oedema peripheral [Unknown]

NARRATIVE: CASE EVENT DATE: 20221116
